FAERS Safety Report 12120874 (Version 1)
Quarter: 2016Q1

REPORT INFORMATION
  Report Type: Spontaneous
  Country: US (occurrence: US)
  Receive Date: 20160226
  Receipt Date: 20160226
  Transmission Date: 20160526
  Serious: No
  Sender: FDA-Public Use
  Company Number: US-ALLERGAN-1309958US

PATIENT
  Age: 61 Year
  Sex: Male

DRUGS (4)
  1. BESIVANCE                          /06324101/ [Concomitant]
     Indication: POSTOPERATIVE CARE
     Dosage: 2 GTT, TID
     Route: 047
  2. PRED FORTE [Concomitant]
     Active Substance: PREDNISOLONE ACETATE
     Indication: POSTOPERATIVE CARE
     Dosage: 2 GTT, UNK
     Route: 047
  3. REFRESH OPTIVE [Suspect]
     Active Substance: CARBOXYMETHYLCELLULOSE SODIUM\GLYCERIN
     Indication: POSTOPERATIVE CARE
     Dosage: 2 GTT, UNK
     Route: 047
  4. BROMDAY [Concomitant]
     Active Substance: BROMFENAC SODIUM
     Indication: POSTOPERATIVE CARE
     Dosage: 2 GTT, QD
     Route: 047

REACTIONS (1)
  - Vision blurred [Recovered/Resolved]
